FAERS Safety Report 4346829-X (Version None)
Quarter: 2004Q2

REPORT INFORMATION
  Report Type: 
  Country: None (occurrence: None)
  Receive Date: 20040426
  Receipt Date: 20040415
  Transmission Date: 20050107
  Serious: Yes (Death)
  Sender: FDA-Public Use
  Company Number: US-BRISTOL-MYERS SQUIBB COMPANY-12561601

PATIENT
  Age: 73 Year
  Sex: Female
  Weight: 57 kg

DRUGS (11)
  1. MEGACE [Suspect]
     Indication: RENAL CELL CARCINOMA STAGE UNSPECIFIED
     Route: 048
     Dates: start: 20040112
  2. MORPHINE SULFATE [Concomitant]
     Route: 048
     Dates: start: 20040112
  3. ZOFRAN [Concomitant]
     Dates: start: 20040112
  4. COUMADIN [Concomitant]
  5. INTERLEUKIN 11 [Concomitant]
     Route: 030
     Dates: start: 20040112
  6. RYTHMOL [Concomitant]
  7. LANOXIN [Concomitant]
  8. LOPID [Concomitant]
  9. ULTRAM [Concomitant]
  10. NEXIUM [Concomitant]
  11. PERCOCET [Concomitant]

REACTIONS (1)
  - DEATH [None]
